FAERS Safety Report 8818662 (Version 1)
Quarter: 2012Q4

REPORT INFORMATION
  Report Type: Spontaneous
  Country: US (occurrence: None)
  Receive Date: 20121002
  Receipt Date: 20121002
  Transmission Date: 20130627
  Serious: Yes (Life-Threatening)
  Sender: FDA-Public Use
  Company Number: 100430-000094

PATIENT
  Age: 39 Year
  Sex: Female

DRUGS (2)
  1. PROACTIVE RENEWING CLEANSER [Suspect]
     Route: 023
     Dates: start: 20100101, end: 20100217
  2. PROACTIV REPAIRING TREATMENT [Suspect]
     Route: 023
     Dates: start: 20100101, end: 20100217

REACTIONS (5)
  - Swelling face [None]
  - Local swelling [None]
  - Urticaria [None]
  - Dyspnoea [None]
  - Rash erythematous [None]
